FAERS Safety Report 7132174-6 (Version None)
Quarter: 2010Q4

REPORT INFORMATION
  Report Type: 
  Country: None (occurrence: None)
  Receive Date: 20101202
  Receipt Date: 20101122
  Transmission Date: 20110411
  Serious: Yes (Death, Life-Threatening, Hospitalization)
  Sender: FDA-Public Use
  Company Number: SE-NOVOPROD-318892

PATIENT
  Age: 10 Month
  Sex: Female

DRUGS (1)
  1. NORDITROPIN NORDIFLEX [Suspect]
     Indication: PRADER-WILLI SYNDROME
     Dosage: UNK
     Dates: start: 20091217, end: 20100510

REACTIONS (3)
  - DIARRHOEA [None]
  - HYPOVOLAEMIC SHOCK [None]
  - SEPSIS [None]
